FAERS Safety Report 9549669 (Version 3)
Quarter: 2014Q2

REPORT INFORMATION
  Report Type: Spontaneous
  Country: US (occurrence: US)
  Receive Date: 20130924
  Receipt Date: 20140425
  Transmission Date: 20141212
  Serious: No
  Sender: FDA-Public Use
  Company Number: US-009507513-1309USA010310

PATIENT
  Sex: Male

DRUGS (3)
  1. PROPECIA [Suspect]
     Indication: ALOPECIA
     Dosage: 1 MG, UNK
     Route: 048
     Dates: start: 20070315, end: 20070917
  2. FINASTERIDE [Suspect]
     Indication: ALOPECIA
     Dosage: 5 MG, UNK
     Route: 048
     Dates: start: 20090326, end: 20121113
  3. AVODART [Suspect]
     Indication: ALOPECIA
     Dosage: 0.5 MG, QD

REACTIONS (20)
  - Cognitive disorder [Not Recovered/Not Resolved]
  - Hypogonadism [Unknown]
  - Dyspareunia [Unknown]
  - Urinary straining [Unknown]
  - Prepuce redundant [Not Recovered/Not Resolved]
  - Phimosis [Not Recovered/Not Resolved]
  - Circumcision [Unknown]
  - Prostatomegaly [Not Recovered/Not Resolved]
  - Alopecia [Unknown]
  - Joint effusion [Recovered/Resolved]
  - Nausea [Unknown]
  - Diarrhoea [Unknown]
  - Alopecia [Unknown]
  - Sexually inappropriate behaviour [Unknown]
  - Erectile dysfunction [Not Recovered/Not Resolved]
  - Sexual dysfunction [Not Recovered/Not Resolved]
  - Gynaecomastia [Not Recovered/Not Resolved]
  - Depression [Recovered/Resolved]
  - Loss of libido [Not Recovered/Not Resolved]
  - Drug ineffective [Unknown]
